FAERS Safety Report 13536845 (Version 8)
Quarter: 2019Q1

REPORT INFORMATION
  Report Type: Spontaneous
  Country: US (occurrence: US)
  Receive Date: 20170511
  Receipt Date: 20190102
  Transmission Date: 20190417
  Serious: No
  Sender: FDA-Public Use
  Company Number: US-PFIZER INC-2017205977

PATIENT
  Age: 86 Year
  Sex: Female
  Weight: 55 kg

DRUGS (8)
  1. LYRICA [Suspect]
     Active Substance: PREGABALIN
     Dosage: 100 MG, 1X/DAY
     Route: 048
  2. LYRICA [Suspect]
     Active Substance: PREGABALIN
     Dosage: 75 MG, 1X/DAY
     Route: 048
     Dates: start: 2016
  3. LYRICA [Suspect]
     Active Substance: PREGABALIN
     Dosage: 75 MG, 1X/DAY (FOR 2 WEEKS; FOR 6 DAYS NOW)
     Dates: start: 20180613, end: 2018
  4. AMLODIPINE [Concomitant]
     Active Substance: AMLODIPINE BESYLATE
     Dosage: 10 MG, DAILY
     Route: 048
  5. LYRICA [Suspect]
     Active Substance: PREGABALIN
     Dosage: 200 MG, 2X/DAY
     Route: 048
     Dates: start: 2016
  6. LYRICA [Suspect]
     Active Substance: PREGABALIN
     Dosage: 25 MG, 1X/DAY (WEANED DOWN)
     Route: 048
     Dates: start: 2018, end: 201807
  7. LYRICA [Suspect]
     Active Substance: PREGABALIN
     Indication: LUMBAR SPINAL STENOSIS
     Dosage: 100 MG, 2X/DAY
     Route: 048
     Dates: start: 2015
  8. LYRICA [Suspect]
     Active Substance: PREGABALIN
     Dosage: 50 MG, UNK
     Route: 048

REACTIONS (8)
  - Insomnia [Recovering/Resolving]
  - Pain [Unknown]
  - Intentional product use issue [Unknown]
  - Nausea [Recovering/Resolving]
  - Headache [Unknown]
  - Withdrawal syndrome [Unknown]
  - Malaise [Recovered/Resolved]
  - Vomiting [Recovered/Resolved]
